FAERS Safety Report 15223174 (Version 2)
Quarter: 2018Q3

REPORT INFORMATION
  Report Type: Spontaneous
  Country: PK (occurrence: PK)
  Receive Date: 20180731
  Receipt Date: 20180822
  Transmission Date: 20181010
  Serious: Yes (Other)
  Sender: FDA-Public Use
  Company Number: PK-JNJFOC-20180736487

PATIENT
  Sex: Female

DRUGS (2)
  1. SPORANOX [Suspect]
     Active Substance: ITRACONAZOLE
     Indication: BODY TINEA
     Route: 048
     Dates: start: 20180503
  2. SPORANOX [Suspect]
     Active Substance: ITRACONAZOLE
     Indication: BODY TINEA
     Route: 048
     Dates: start: 20180501, end: 20180501

REACTIONS (1)
  - Cardiac murmur [Unknown]
